FAERS Safety Report 13095134 (Version 1)
Quarter: 2017Q1

REPORT INFORMATION
  Report Type: Other
  Country: ES (occurrence: ES)
  Receive Date: 20170107
  Receipt Date: 20170107
  Transmission Date: 20170428
  Serious: Yes (Life-Threatening, Hospitalization)
  Sender: FDA-Public Use
  Company Number: ES-GRANULES INDIA LIMITED-1061698

PATIENT
  Age: 3 Year
  Sex: Male

DRUGS (4)
  1. AMOXICILLIN/CLAVULANIC ACID [Suspect]
     Active Substance: AMOXICILLIN\CLAVULANIC ACID
  2. IBUPROFEN. [Suspect]
     Active Substance: IBUPROFEN
     Indication: MORAXELLA INFECTION
  3. ACYCLOVIR. [Concomitant]
     Active Substance: ACYCLOVIR
  4. AMOXICILLIN. [Suspect]
     Active Substance: AMOXICILLIN

REACTIONS (2)
  - Toxic epidermal necrolysis [Recovering/Resolving]
  - Off label use [Unknown]
